FAERS Safety Report 5711612-7 (Version None)
Quarter: 2008Q2

REPORT INFORMATION
  Report Type: 
  Country: None (occurrence: None)
  Receive Date: 20080421
  Receipt Date: 20080417
  Transmission Date: 20081010
  Serious: Yes (Life-Threatening)
  Sender: FDA-Public Use
  Company Number: JP-ASTRAZENECA-2007AP00669

PATIENT
  Age: 66 Year
  Sex: Male
  Weight: 40 kg

DRUGS (3)
  1. XYLOCAINE [Suspect]
     Indication: NERVE BLOCK
     Route: 053
     Dates: start: 20050324, end: 20050324
  2. THEOPHYLLINE [Concomitant]
     Indication: ASTHMA
     Dosage: DOSE UNKNOWN
     Route: 048
  3. ANABOLIC STEROIDS AND PREPARATIONS [Concomitant]
     Indication: EMPHYSEMA
     Dosage: DOSE UNKNOWN
     Route: 048

REACTIONS (1)
  - DRUG TOXICITY [None]
